FAERS Safety Report 16923077 (Version 1)
Quarter: 2019Q4

REPORT INFORMATION
  Report Type: Spontaneous
  Country: KW (occurrence: KW)
  Receive Date: 20191016
  Receipt Date: 20191016
  Transmission Date: 20200122
  Serious: Yes (Other)
  Sender: FDA-Public Use
  Company Number: KW-ACCORD-158111

PATIENT
  Age: 8 Year
  Sex: Male
  Weight: 24 kg

DRUGS (12)
  1. SERTRALINE [Suspect]
     Active Substance: SERTRALINE HYDROCHLORIDE
     Indication: BEHAVIOUR DISORDER
  2. CLONIDINE. [Concomitant]
     Active Substance: CLONIDINE
     Indication: BEHAVIOUR DISORDER
  3. CLONIDINE. [Concomitant]
     Active Substance: CLONIDINE
     Indication: AUTISM SPECTRUM DISORDER
  4. SERTRALINE [Suspect]
     Active Substance: SERTRALINE HYDROCHLORIDE
     Indication: AUTISM SPECTRUM DISORDER
  5. ARIPIPRAZOLE. [Concomitant]
     Active Substance: ARIPIPRAZOLE
     Indication: BEHAVIOUR DISORDER
  6. VALPROIC ACID. [Concomitant]
     Active Substance: VALPROIC ACID
     Indication: AUTISM SPECTRUM DISORDER
  7. RISPERIDONE. [Concomitant]
     Active Substance: RISPERIDONE
     Indication: INTELLECTUAL DISABILITY
  8. ARIPIPRAZOLE. [Concomitant]
     Active Substance: ARIPIPRAZOLE
     Indication: AUTISM SPECTRUM DISORDER
  9. NALTREXONE [Concomitant]
     Active Substance: NALTREXONE
     Indication: AUTISM SPECTRUM DISORDER
  10. RISPERIDONE. [Concomitant]
     Active Substance: RISPERIDONE
     Indication: AUTISM SPECTRUM DISORDER
  11. VALPROIC ACID. [Concomitant]
     Active Substance: VALPROIC ACID
     Indication: INTELLECTUAL DISABILITY
  12. NALTREXONE [Concomitant]
     Active Substance: NALTREXONE
     Indication: INTELLECTUAL DISABILITY

REACTIONS (2)
  - Paradoxical drug reaction [Unknown]
  - Agitation [Unknown]
